FAERS Safety Report 8177140-7 (Version None)
Quarter: 2012Q1

REPORT INFORMATION
  Report Type: 
  Country: None (occurrence: None)
  Receive Date: 20120301
  Receipt Date: 20120224
  Transmission Date: 20120608
  Serious: Yes (Hospitalization)
  Sender: FDA-Public Use
  Company Number: FR-GLAXOSMITHKLINE-B0779514A

PATIENT
  Sex: Female
  Weight: 63 kg

DRUGS (1)
  1. RYTHMOL [Suspect]
     Indication: VENTRICULAR EXTRASYSTOLES
     Dosage: 300MG PER DAY
     Route: 048

REACTIONS (6)
  - MALAISE [None]
  - GRAND MAL CONVULSION [None]
  - LOSS OF CONSCIOUSNESS [None]
  - VOMITING [None]
  - ABDOMINAL PAIN [None]
  - HYPERHIDROSIS [None]
